FAERS Safety Report 8957838 (Version 3)
Quarter: 2013Q1

REPORT INFORMATION
  Report Type: Spontaneous
  Country: US (occurrence: US)
  Receive Date: 20121211
  Receipt Date: 20130227
  Transmission Date: 20140127
  Serious: Yes (Hospitalization)
  Sender: FDA-Public Use
  Company Number: US-ELI_LILLY_AND_COMPANY-US201111001942

PATIENT
  Age: 72 Year
  Sex: Female

DRUGS (12)
  1. FORTEO [Suspect]
     Dosage: 20 UG, QD
     Route: 058
     Dates: start: 20110304, end: 20120128
  2. FORTEO [Suspect]
     Dosage: 20 UG, QD
     Route: 058
  3. NEURONTIN [Concomitant]
  4. BYSTOLIC [Concomitant]
  5. OMEPRAZOLE [Concomitant]
  6. ASPIRIN [Concomitant]
  7. PREDNISONE [Concomitant]
     Dosage: 10 MG, UNK
  8. XANAX [Concomitant]
     Dosage: 1 MG, EACH EVENING
  9. NORCO [Concomitant]
     Dosage: UNK UNK, EACH EVENING
  10. PRAVASTATIN [Concomitant]
     Dosage: UNK
  11. ADVAIR [Concomitant]
  12. COMBIVENT [Concomitant]

REACTIONS (6)
  - Fall [Recovered/Resolved]
  - Femur fracture [Unknown]
  - Fall [Unknown]
  - Pelvic fracture [Unknown]
  - Blood pressure increased [Unknown]
  - Anxiety [Unknown]
